FAERS Safety Report 10960265 (Version 3)
Quarter: 2015Q2

REPORT INFORMATION
  Report Type: Spontaneous
  Country: MX (occurrence: MX)
  Receive Date: 20150327
  Receipt Date: 20150406
  Transmission Date: 20150821
  Serious: Yes (Death, Hospitalization, Other)
  Sender: FDA-Public Use
  Company Number: MX-ROCHE-1555351

PATIENT
  Age: 52 Year
  Sex: Male
  Weight: 75.1 kg

DRUGS (13)
  1. CYCLOPHOSPHAMIDE. [Suspect]
     Active Substance: CYCLOPHOSPHAMIDE
     Indication: DIFFUSE LARGE B-CELL LYMPHOMA
     Route: 042
     Dates: start: 20150310
  2. DOXORUBICIN [Suspect]
     Active Substance: DOXORUBICIN
     Indication: DIFFUSE LARGE B-CELL LYMPHOMA
     Route: 042
     Dates: start: 20150310, end: 20150310
  3. HYDROCORTISONE. [Concomitant]
     Active Substance: HYDROCORTISONE
     Indication: PREMEDICATION
     Route: 042
     Dates: start: 20150309, end: 20150310
  4. DIPHENHYDRAMINE [Concomitant]
     Active Substance: DIPHENHYDRAMINE
     Indication: PREMEDICATION
     Route: 042
     Dates: start: 20150309, end: 20150309
  5. ONDANSETRON [Concomitant]
     Active Substance: ONDANSETRON
     Indication: PREMEDICATION
     Route: 042
     Dates: start: 20150310, end: 20150310
  6. GAZYVA [Suspect]
     Active Substance: OBINUTUZUMAB
     Route: 042
     Dates: start: 20150310, end: 20150310
  7. OMEPRAZOLE. [Concomitant]
     Active Substance: OMEPRAZOLE
  8. DIPHENHYDRAMINE [Concomitant]
     Active Substance: DIPHENHYDRAMINE
     Route: 042
     Dates: start: 20150310, end: 20150310
  9. VINCRISTINE [Suspect]
     Active Substance: VINCRISTINE
     Indication: DIFFUSE LARGE B-CELL LYMPHOMA
     Route: 042
     Dates: start: 20150310, end: 20150310
  10. GAZYVA [Suspect]
     Active Substance: OBINUTUZUMAB
     Indication: DIFFUSE LARGE B-CELL LYMPHOMA
     Route: 042
     Dates: start: 20150309, end: 20150309
  11. ACICLOVIR [Concomitant]
     Active Substance: ACYCLOVIR
     Indication: ORAL HERPES
     Dosage: DURING 7 DAYS
     Route: 048
     Dates: start: 20150309, end: 20150316
  12. DEXAMETHASONE. [Concomitant]
     Active Substance: DEXAMETHASONE
     Indication: PREMEDICATION
     Route: 042
     Dates: start: 20150309, end: 20150310
  13. METICORTELONE [Concomitant]
     Active Substance: PREDNISOLONE ACETATE

REACTIONS (14)
  - Septic shock [Fatal]
  - Dehydration [Unknown]
  - Acute kidney injury [Unknown]
  - Respiratory failure [Unknown]
  - Hypotension [Recovered/Resolved]
  - Abdominal pain [Unknown]
  - Haemoglobin decreased [Recovered/Resolved]
  - Vomiting [Unknown]
  - Platelet count decreased [Unknown]
  - Hypothermia [Unknown]
  - Neutropenia [Unknown]
  - Abdominal distension [Recovered/Resolved]
  - Tachycardia [Unknown]
  - Off label use [Unknown]

NARRATIVE: CASE EVENT DATE: 20150309
